FAERS Safety Report 16875791 (Version 1)
Quarter: 2019Q4

REPORT INFORMATION
  Report Type: Spontaneous
  Country: US (occurrence: US)
  Receive Date: 20191001
  Receipt Date: 20191001
  Transmission Date: 20200122
  Serious: Yes (Hospitalization)
  Sender: FDA-Public Use
  Company Number: None

PATIENT
  Age: 47 Year
  Sex: Male
  Weight: 65 kg

DRUGS (2)
  1. TRIMETHOPRIM/SULFMETHOXAZOLE [Suspect]
     Active Substance: SULFAMETHOXAZOLE\TRIMETHOPRIM
     Indication: ABDOMINAL ABSCESS
     Route: 048
     Dates: start: 20190923, end: 20190930
  2. METRONIDAZOLE 0.75% GEL [Concomitant]
     Dates: start: 20190923, end: 20191001

REACTIONS (5)
  - Mouth ulceration [None]
  - Haematuria [None]
  - Petechiae [None]
  - Epistaxis [None]
  - Haemorrhage [None]

NARRATIVE: CASE EVENT DATE: 20191001
